FAERS Safety Report 23664014 (Version 1)
Quarter: 2024Q1

REPORT INFORMATION
  Report Type: Spontaneous
  Country: CA (occurrence: CA)
  Receive Date: 20240322
  Receipt Date: 20240322
  Transmission Date: 20240410
  Serious: Yes (Other)
  Sender: FDA-Public Use
  Company Number: CA-SANDOZ-SDZ2024CA031133

PATIENT
  Sex: Female

DRUGS (3)
  1. CYCLOPHOSPHAMIDE [Suspect]
     Active Substance: CYCLOPHOSPHAMIDE
     Indication: Fibrillary glomerulonephritis
     Dosage: UNK
     Route: 042
  2. PREDNISONE [Suspect]
     Active Substance: PREDNISONE
     Indication: Fibrillary glomerulonephritis
     Dosage: UNK
     Route: 065
  3. RUXIENCE [Suspect]
     Active Substance: RITUXIMAB-PVVR
     Indication: Fibrillary glomerulonephritis
     Dosage: CONCENTRATE. SINGLE USE VIAL
     Route: 042

REACTIONS (2)
  - Fibrillary glomerulonephritis [Unknown]
  - Glomerulonephritis rapidly progressive [Unknown]
